FAERS Safety Report 8617811-9 (Version None)
Quarter: 2012Q3

REPORT INFORMATION
  Report Type: 
  Country: None (occurrence: None)
  Receive Date: 20120824
  Receipt Date: 20120215
  Transmission Date: 20120928
  Serious: No
  Sender: FDA-Public Use
  Company Number: US-ASTRAZENECA-2012SE10368

PATIENT
  Age: 70 Year
  Sex: Male
  Weight: 95.3 kg

DRUGS (6)
  1. TAMSULOSIN HYDROCHLORIDE [Concomitant]
     Indication: PROSTATIC DISORDER
  2. SYMBICORT [Suspect]
     Indication: CHRONIC OBSTRUCTIVE PULMONARY DISEASE
     Route: 055
  3. KEPPRA [Concomitant]
     Indication: CONVULSION
  4. STOMACH PILLS [Concomitant]
  5. SYMBICORT [Suspect]
     Dosage: 160/4.5 MCG, BID
     Route: 055
     Dates: start: 20120209
  6. SYMBICORT [Suspect]
     Dosage: 160/4.5 MCG, ONE PUFF QD
     Route: 055

REACTIONS (3)
  - MYALGIA [None]
  - OFF LABEL USE [None]
  - MUSCLE SPASMS [None]
